FAERS Safety Report 5512772-3 (Version None)
Quarter: 2007Q4

REPORT INFORMATION
  Report Type: 
  Country: None (occurrence: None)
  Receive Date: 20071108
  Receipt Date: 20071102
  Transmission Date: 20080405
  Serious: Yes (Other)
  Sender: FDA-Public Use
  Company Number: 2007SP022365

PATIENT
  Age: 18 Year
  Sex: Male

DRUGS (1)
  1. CORICIDIN [Suspect]
     Indication: DRUG USE FOR UNKNOWN INDICATION
     Dosage: 20 DF; QD; PO
     Route: 048

REACTIONS (3)
  - DRUG DEPENDENCE [None]
  - OVERDOSE [None]
  - WRONG DRUG ADMINISTERED [None]
